FAERS Safety Report 6045640-1 (Version None)
Quarter: 2009Q1

REPORT INFORMATION
  Report Type: 
  Country: None (occurrence: None)
  Receive Date: 20090121
  Receipt Date: 20090114
  Transmission Date: 20090719
  Serious: Yes (Other)
  Sender: FDA-Public Use
  Company Number: BR-ABBOTT-09P-020-0497929-00

PATIENT
  Sex: Female

DRUGS (2)
  1. HUMIRA [Suspect]
     Indication: RHEUMATOID ARTHRITIS
     Route: 058
     Dates: start: 20080430, end: 20080501
  2. HUMIRA [Suspect]
     Dates: start: 20080401

REACTIONS (5)
  - ABDOMINAL PAIN [None]
  - BACTERIAL INFECTION [None]
  - HYPERSENSITIVITY [None]
  - OVARIAN CYST [None]
  - RASH MACULAR [None]
